FAERS Safety Report 9843252 (Version 2)
Quarter: 2014Q1

REPORT INFORMATION
  Report Type: Spontaneous
  Country: BR (occurrence: BR)
  Receive Date: 20140124
  Receipt Date: 20140124
  Transmission Date: 20141002
  Serious: Yes (Death, Hospitalization)
  Sender: FDA-Public Use
  Company Number: BR-ABBVIE-14P-020-1192706-00

PATIENT
  Sex: Female

DRUGS (3)
  1. HUMIRA [Suspect]
     Indication: RHEUMATOID ARTHRITIS
     Route: 058
     Dates: start: 201308
  2. PREDNISONE [Concomitant]
  3. CHLOROQUINE [Concomitant]

REACTIONS (5)
  - Pulmonary fibrosis [Fatal]
  - Dyspnoea [Unknown]
  - Infection [Unknown]
  - Hypopnoea [Unknown]
  - Pulmonary fibrosis [Unknown]
